FAERS Safety Report 8979049 (Version 1)
Quarter: 2012Q4

REPORT INFORMATION
  Report Type: 
  Country: CH (occurrence: CH)
  Receive Date: 20121221
  Receipt Date: 20121221
  Transmission Date: 20130627
  Serious: Yes (Hospitalization, Other)
  Sender: FDA-Public Use
  Company Number: CH-ASTRAZENECA-2011SE74604

PATIENT
  Age: 35 Year
  Sex: Female

DRUGS (3)
  1. SEROQUEL [Suspect]
     Route: 048
  2. CIPRALEX [Suspect]
     Route: 048
  3. LABETALOL [Concomitant]
     Indication: HYPERTENSION

REACTIONS (2)
  - Cardiac failure [Unknown]
  - Exposure during pregnancy [Recovered/Resolved]
